FAERS Safety Report 4635326-X (Version None)
Quarter: 2005Q2

REPORT INFORMATION
  Report Type: 
  Country: None (occurrence: None)
  Receive Date: 20050411
  Receipt Date: 20050329
  Transmission Date: 20051028
  Serious: Yes (Other)
  Sender: FDA-Public Use
  Company Number: HQWYE599531MAR05

PATIENT
  Age: 37 Year
  Sex: Female

DRUGS (1)
  1. PREMARIN [Suspect]
     Indication: HORMONE REPLACEMENT THERAPY
     Dosage: 0.625MG TABLET DAILY; ORAL
     Route: 048
     Dates: start: 19910101

REACTIONS (6)
  - COLON ADENOMA [None]
  - ENDOMETRIOSIS [None]
  - PELVIC PERITONEAL ADHESIONS [None]
  - RECTAL ADENOMA [None]
  - RECTOSIGMOID CANCER [None]
  - SARCOMA [None]
